FAERS Safety Report 23662539 (Version 1)
Quarter: 2024Q1

REPORT INFORMATION
  Report Type: Spontaneous
  Country: US (occurrence: US)
  Receive Date: 20240322
  Receipt Date: 20240322
  Transmission Date: 20240410
  Serious: Yes (Disabling, Other)
  Sender: FDA-Public Use
  Company Number: US-REGENERON PHARMACEUTICALS, INC.-2024-048030

PATIENT
  Sex: Female

DRUGS (3)
  1. EYLEA [Suspect]
     Active Substance: AFLIBERCEPT
     Indication: Product used for unknown indication
     Dosage: UNK, RIGHT EYE, FORMULATION: UNKNOWN
     Dates: start: 20191231, end: 20191231
  2. EYLEA [Suspect]
     Active Substance: AFLIBERCEPT
     Dosage: UNK, RIGHT EYE, FORMULATION: UNKNOWN
     Dates: start: 202002, end: 202002
  3. EYLEA [Suspect]
     Active Substance: AFLIBERCEPT
     Dosage: UNK, RIGHT EYE, FORMULATION: UNKNOWN
     Dates: start: 202004, end: 202004

REACTIONS (10)
  - Blindness [Unknown]
  - Weight increased [Unknown]
  - Intraocular pressure increased [Unknown]
  - Retinal detachment [Unknown]
  - Eye haemorrhage [Unknown]
  - Headache [Unknown]
  - Motion sickness [Unknown]
  - Depression [Unknown]
  - Loss of personal independence in daily activities [Unknown]
  - Eye pain [Unknown]

NARRATIVE: CASE EVENT DATE: 20191231
